FAERS Safety Report 20354537 (Version 14)
Quarter: 2024Q3

REPORT INFORMATION
  Report Type: Report from Study
  Country: US (occurrence: US)
  Receive Date: 20220120
  Receipt Date: 20240905
  Transmission Date: 20241016
  Serious: No
  Sender: GLAXOSMITHKLINE
  Company Number: US-GLAXOSMITHKLINE-US2022AMR010124

PATIENT
  Age: 54 Year
  Sex: Female

DRUGS (6)
  1. NIRAPARIB [Suspect]
     Active Substance: NIRAPARIB
     Indication: Ovarian cancer
     Dosage: 100 MG, FOR 7 DAYS ON/14 DAYS OFF
     Route: 048
     Dates: start: 2020
  2. NIRAPARIB [Suspect]
     Active Substance: NIRAPARIB
     Indication: Ovarian cancer
     Dosage: 300 MG, BID
     Dates: start: 2019
  3. NIRAPARIB [Suspect]
     Active Substance: NIRAPARIB
     Dosage: 200 MG QD
     Route: 048
     Dates: start: 20191201
  4. NIRAPARIB [Suspect]
     Active Substance: NIRAPARIB
     Dosage: 100 MG, QD (7 DAYS ON AND 7 DAYS OFF)
     Route: 048
     Dates: start: 20211001, end: 20220207
  5. NIRAPARIB [Suspect]
     Active Substance: NIRAPARIB
     Dosage: 100 MG, QD (7 DAYS ON AND 7 DAYS OFF,)
     Route: 048
     Dates: start: 20220306
  6. NIRAPARIB [Suspect]
     Active Substance: NIRAPARIB
     Dosage: 100 MG, QD (7 DAYS ON/14 DAYS OFF)
     Route: 048
     Dates: start: 20220401

REACTIONS (20)
  - Anxiety [Not Recovered/Not Resolved]
  - Insomnia [Not Recovered/Not Resolved]
  - Fatigue [Recovering/Resolving]
  - Pain [Not Recovered/Not Resolved]
  - Constipation [Recovering/Resolving]
  - Cognitive disorder [Not Recovered/Not Resolved]
  - Memory impairment [Not Recovered/Not Resolved]
  - Ill-defined disorder [Recovered/Resolved]
  - Abdominal discomfort [Not Recovered/Not Resolved]
  - Hypertension [Recovered/Resolved]
  - Headache [Not Recovered/Not Resolved]
  - Arthralgia [Not Recovered/Not Resolved]
  - Abdominal distension [Recovering/Resolving]
  - Back pain [Not Recovered/Not Resolved]
  - Feeling abnormal [Unknown]
  - Osteoarthritis [Not Recovered/Not Resolved]
  - Extra dose administered [Unknown]
  - Incorrect dose administered [Not Recovered/Not Resolved]
  - Product dose omission issue [Recovered/Resolved]
  - Inappropriate schedule of product administration [Not Recovered/Not Resolved]

NARRATIVE: CASE EVENT DATE: 20220207
